FAERS Safety Report 11731145 (Version 1)
Quarter: 2015Q4

REPORT INFORMATION
  Report Type: Report from Study
  Country: US (occurrence: US)
  Receive Date: 20151112
  Receipt Date: 20151112
  Transmission Date: 20160304
  Serious: Yes (Other)
  Sender: FDA-Public Use
  Company Number: US-AMGEN-USASL2015119237

PATIENT
  Sex: Male

DRUGS (1)
  1. ENBREL [Suspect]
     Active Substance: ETANERCEPT
     Indication: PSORIATIC ARTHROPATHY
     Dosage: UNK UNK, UNK
     Route: 065
     Dates: start: 20140312

REACTIONS (8)
  - Blood pressure abnormal [Unknown]
  - Viral infection [Unknown]
  - Loss of consciousness [Unknown]
  - Dizziness [Unknown]
  - Fall [Unknown]
  - Red blood cell count increased [Unknown]
  - Blood viscosity abnormal [Unknown]
  - Bacterial infection [Unknown]
